FAERS Safety Report 20923421 (Version 1)
Quarter: 2022Q2

REPORT INFORMATION
  Report Type: Spontaneous
  Country: US (occurrence: US)
  Receive Date: 20220607
  Receipt Date: 20220607
  Transmission Date: 20220721
  Serious: Yes (Hospitalization, Other)
  Sender: FDA-Public Use
  Company Number: US-MLMSERVICE-20220518-3564662-1

PATIENT
  Age: 79 Year
  Sex: Male

DRUGS (1)
  1. VALACYCLOVIR HYDROCHLORIDE [Suspect]
     Active Substance: VALACYCLOVIR HYDROCHLORIDE
     Indication: Herpes zoster
     Dosage: 2000 MILLIGRAM, TOTAL (TWO DOSES OF PRESCRIBED VALACYCLOVIR 1000 MG THREE TIMES DAILY)
     Route: 065

REACTIONS (4)
  - Dysarthria [Recovered/Resolved]
  - Delirium [Recovered/Resolved]
  - Sensory loss [Recovered/Resolved]
  - Neurotoxicity [Recovered/Resolved]
